FAERS Safety Report 12965545 (Version 1)
Quarter: 2016Q4

REPORT INFORMATION
  Report Type: Spontaneous
  Country: TW (occurrence: TW)
  Receive Date: 20161122
  Receipt Date: 20161122
  Transmission Date: 20170207
  Serious: Yes (Hospitalization)
  Sender: FDA-Public Use
  Company Number: TW-UNICHEM LABORATORIES LIMITED-UCM201611-000257

PATIENT
  Age: 73 Year
  Sex: Female

DRUGS (1)
  1. QUETIAPINE. [Suspect]
     Active Substance: QUETIAPINE
     Indication: MENTAL DISORDER

REACTIONS (2)
  - Petit mal epilepsy [Recovered/Resolved]
  - Urinary incontinence [Unknown]
